FAERS Safety Report 17808214 (Version 1)
Quarter: 2020Q2

REPORT INFORMATION
  Report Type: Spontaneous
  Country: SE (occurrence: SE)
  Receive Date: 20200520
  Receipt Date: 20200520
  Transmission Date: 20200714
  Serious: Yes (Hospitalization)
  Sender: FDA-Public Use
  Company Number: SE-MYLANLABS-2020M1048812

PATIENT
  Age: 75 Year
  Sex: Male

DRUGS (32)
  1. IRINOTECAN [Suspect]
     Active Substance: IRINOTECAN
     Indication: OESOPHAGEAL CARCINOMA
     Dosage: UNK
     Route: 042
     Dates: start: 20200421, end: 20200421
  2. CILAXORAL [Concomitant]
     Active Substance: SODIUM PICOSULFATE
     Dosage: ENLIGT SEPARAT BEHANDLINGSSCHEMA.
     Dates: start: 20200311
  3. ALVEDON [Concomitant]
     Active Substance: ACETAMINOPHEN
     Dosage: 3000 MILLIGRAM, QD
     Dates: start: 20200319
  4. OXALIPLATIN. [Suspect]
     Active Substance: OXALIPLATIN
     Indication: OESOPHAGEAL CARCINOMA
     Dosage: 1 DOSAGE FORM, TOTAL (DOS 1)
     Route: 042
     Dates: start: 20200421, end: 20200421
  5. OLIMEL E [Concomitant]
     Active Substance: AMINO ACIDS\DEXTROSE\ELECTROLYTES NOS\SOYBEAN OIL
     Dosage: VB
     Dates: start: 20200212
  6. BETAPRED [Concomitant]
     Active Substance: BETAMETHASONE SODIUM PHOSPHATE
     Dosage: ENLIGT SEPARAT BEHANDLINGSSCHEMA
     Dates: start: 20190822
  7. ACETYLCYSTEIN MEDA [Concomitant]
     Dosage: 400 MILLIGRAM, QD
     Dates: start: 20190814
  8. VANCOCIN [Concomitant]
     Active Substance: VANCOMYCIN HYDROCHLORIDE
     Dosage: 250 MILLIGRAM, QD
     Dates: start: 20200318
  9. BAKLOFEN MYLAN [Concomitant]
     Active Substance: BACLOFEN
     Dosage: 5 MILLIGRAM, PRN (MAX 15 MG/DYGN)
     Dates: start: 20190916
  10. AMLODIPINE [Concomitant]
     Active Substance: AMLODIPINE BESYLATE
     Dosage: 20 MILLIGRAM, QD
     Dates: start: 20200310
  11. CANDEXETIL [Concomitant]
     Active Substance: CANDESARTAN
     Dosage: 32 MILLIGRAM, QD
     Dates: start: 20200320
  12. TARGINIQ ER [Concomitant]
     Active Substance: NALOXONE HYDROCHLORIDE\OXYCODONE HYDROCHLORIDE
     Dosage: 2 DOSAGE FORM, QD
     Dates: start: 20200416
  13. ONDANSETRON FRESENIUS KABI [Concomitant]
     Dosage: ENLIGT SEPARAT BCHANDLINGSSCHEMA.
     Dates: start: 20200402
  14. VITALIPID ADULT [Concomitant]
     Active Substance: ERGOCALCIFEROL\PHYTONADIONE\RETINOL\TOCOPHEROL
     Dosage: VB (VITALIPID ADULT CONCENTRATE FOR SOLUTION FOR INFUSION, EMULSION)
     Dates: start: 20200212
  15. VIAGRA [Concomitant]
     Active Substance: SILDENAFIL CITRATE
     Dosage: 100 MILLIGRAM, PRN (MAX 1 PER DYGN)
     Dates: start: 20100726
  16. PRIMPERAN [Concomitant]
     Active Substance: METOCLOPRAMIDE HYDROCHLORIDE
     Dosage: ENLIGT SEPARAT BEHANDLINGSSCHEMA
     Dates: start: 20200402
  17. ESOMEPRAZOL KRKA [Concomitant]
     Dosage: 80 MILLIGRAM, QD
     Dates: start: 20191025
  18. OXYNORM [Concomitant]
     Active Substance: OXYCODONE HYDROCHLORIDE
     Dosage: 1-2 KAPSLAR VID BEHOV MAX 6  ST PER DYGN
     Dates: start: 20200325
  19. BISOLVON [Concomitant]
     Active Substance: BROMHEXINE HYDROCHLORIDE
     Dosage: 5 MILLILITER, PRN (MAX 15 ML/DYGN)
     Dates: start: 20191011
  20. ADDAVEN [Concomitant]
     Active Substance: ELECTROLYTES NOS\MINERALS
     Dosage: VB
     Dates: start: 20200212
  21. BETAPRED [Concomitant]
     Active Substance: BETAMETHASONE SODIUM PHOSPHATE
     Dosage: ENLIGT SEPARAT BEHANDLINGSSCHEMA
     Dates: start: 20200402
  22. ONDANSETRON TEVA                   /00955301/ [Concomitant]
     Dosage: ENLIGT SEPARAT BCHANDLINGSSCHEMA
     Dates: start: 20200402
  23. NATRIUMKLORID EVOLAN [Concomitant]
     Dosage: 2000 MILLIGRAM, QD
     Dates: start: 20191125
  24. INNOHEP [Concomitant]
     Active Substance: TINZAPARIN SODIUM
     Dosage: 2 DOSAGE FORM, QD
     Dates: start: 20191010
  25. EMEND [Concomitant]
     Active Substance: APREPITANT
     Dosage: ENLIGT SEPARAT BEHANDLINGSSCHEMA
     Dates: start: 20200402
  26. GLYCERYL TRINITRATE [Concomitant]
     Active Substance: NITROGLYCERIN
     Dosage: 0.5 MILLIGRAM, PRN
     Route: 060
     Dates: start: 20150705
  27. SOOLANTRA [Concomitant]
     Active Substance: IVERMECTIN
     Dosage: 1 DOSAGE FORM, PRN (1 G?NG/DAG)
     Dates: start: 20171115
  28. OXYNORM [Concomitant]
     Active Substance: OXYCODONE HYDROCHLORIDE
     Dosage: 0,5-1 ML VID BEHOV
     Dates: start: 20200322
  29. OMEPRAZOL BLUEFISH [Concomitant]
     Dosage: 20 MILLIGRAM, QD
     Dates: start: 20200402
  30. PRIMPERAN [Concomitant]
     Active Substance: METOCLOPRAMIDE HYDROCHLORIDE
     Dosage: ENLIGT SEPARAT BCHANDLINGSSCHEMA
     Dates: start: 20200402
  31. OXASCAND [Concomitant]
     Active Substance: OXAZEPAM
     Dosage: 5 MILLIGRAM, PRN, MAX 4 ST /DYGN
     Dates: start: 20191221
  32. MOVICOL [Concomitant]
     Active Substance: POLYETHYLENE GLYCOL 3350\POTASSIUM CHLORIDE\SODIUM BICARBONATE\SODIUM CHLORIDE
     Dosage: 1-2 P?SAR VB, MAX 4 /DYGN
     Dates: start: 20200102

REACTIONS (4)
  - Chest discomfort [Recovered/Resolved]
  - Vision blurred [Recovered/Resolved]
  - Temporomandibular joint syndrome [Recovered/Resolved]
  - Dizziness [Recovered/Resolved]

NARRATIVE: CASE EVENT DATE: 20200421
